FAERS Safety Report 5844837-0 (Version None)
Quarter: 2008Q3

REPORT INFORMATION
  Report Type: 
  Country: None (occurrence: None)
  Receive Date: 20080812
  Receipt Date: 20080724
  Transmission Date: 20090109
  Serious: Yes (Other)
  Sender: FDA-Public Use
  Company Number: 2008S1013127

PATIENT
  Age: 39 Year
  Sex: Female

DRUGS (12)
  1. RANITIDINE [Suspect]
     Indication: ANAESTHESIA
     Dosage: 20 MG; INTRAVENOUS
     Route: 042
  2. METOCLOPRAMIDE [Suspect]
     Dosage: 1.7 MG
  3. CLONAZEPAM [Suspect]
     Dosage: 0.5 MG
  4. LACTULOSE [Suspect]
  5. LITHIUM CARBONATE [Suspect]
  6. OLANZAPINE [Suspect]
     Dosage: 20 MG
  7. SODIUM CITRATE [Suspect]
  8. SUXAMETHONIUM (SUXAMETHONIUM) [Suspect]
  9. THIOPENTONE /00053401/ (THIOPENTAL) [Suspect]
  10. FOLIC ACID [Suspect]
  11. FORANE [Suspect]
  12. HARTMANN'S SOLUTION (RINGER-LACTATE) [Suspect]

REACTIONS (9)
  - ANAESTHETIC COMPLICATION [None]
  - CAESAREAN SECTION [None]
  - DELAYED RECOVERY FROM ANAESTHESIA [None]
  - DRUG EXPOSURE DURING PREGNANCY [None]
  - DRUG LEVEL ABOVE THERAPEUTIC [None]
  - HAEMOGLOBIN DECREASED [None]
  - HYDRONEPHROSIS [None]
  - THERAPEUTIC AGENT TOXICITY [None]
  - URINOMA [None]
